FAERS Safety Report 6401144-5 (Version None)
Quarter: 2009Q4

REPORT INFORMATION
  Report Type: 
  Country: None (occurrence: None)
  Receive Date: 20091015
  Receipt Date: 20091006
  Transmission Date: 20100525
  Serious: Yes (Hospitalization)
  Sender: FDA-Public Use
  Company Number: US-AMGEN-QUU367777

PATIENT
  Sex: Male

DRUGS (2)
  1. ENBREL [Suspect]
     Indication: RHEUMATOID ARTHRITIS
     Route: 058
     Dates: start: 20000914
  2. SULFASALAZINE [Concomitant]
     Route: 048

REACTIONS (3)
  - ARTHRITIS [None]
  - INJECTION SITE IRRITATION [None]
  - OSTEOARTHRITIS [None]
